FAERS Safety Report 9652325 (Version 1)
Quarter: 2013Q4

REPORT INFORMATION
  Report Type: Spontaneous
  Country: US (occurrence: US)
  Receive Date: 20131029
  Receipt Date: 20131029
  Transmission Date: 20140711
  Serious: No
  Sender: FDA-Public Use
  Company Number: US-BIOGENIDEC-2013BI075573

PATIENT
  Age: 58 Year
  Sex: Female

DRUGS (8)
  1. TECFIDERA [Suspect]
     Indication: MULTIPLE SCLEROSIS
     Route: 048
     Dates: start: 20130716, end: 20130722
  2. TECFIDERA [Suspect]
     Indication: MULTIPLE SCLEROSIS
     Route: 048
     Dates: start: 20130723
  3. PREMPRO [Concomitant]
  4. CITALOPRAM [Concomitant]
  5. SIMVASTATIN [Concomitant]
  6. METOPROLOL SUCC ER [Concomitant]
  7. NEXIUM [Concomitant]
  8. ASPIRIN [Concomitant]

REACTIONS (12)
  - Headache [Not Recovered/Not Resolved]
  - Diarrhoea [Not Recovered/Not Resolved]
  - Pruritus [Unknown]
  - Chills [Unknown]
  - Tremor [Unknown]
  - Hypersomnia [Unknown]
  - Chest pain [Unknown]
  - Abdominal pain [Unknown]
  - Adverse event [Unknown]
  - Abdominal pain upper [Unknown]
  - Coordination abnormal [Unknown]
  - Balance disorder [Unknown]
